FAERS Safety Report 9841816 (Version 1)
Quarter: 2013Q4

REPORT INFORMATION
  Report Type: Spontaneous
  Country: US (occurrence: None)
  Receive Date: 20131211
  Receipt Date: 20131211
  Transmission Date: 20140711
  Serious: Yes (Other)
  Sender: FDA-Public Use
  Company Number: ALL1-2012-02244

PATIENT
  Age: 6 Year
  Sex: Male
  Weight: 27.7 kg

DRUGS (2)
  1. VYVANSE (LISDEXAMFETAMINE DIMESYLATE) CAPSULE [Suspect]
     Indication: ATTENTION DEFICIT/HYPERACTIVITY DISORDER
     Route: 048
     Dates: start: 20120427, end: 20120427
  2. RISPERDAL (RISPERIDONE) [Concomitant]

REACTIONS (4)
  - Hallucination [None]
  - Visual impairment [None]
  - Fear [None]
  - Crying [None]
